FAERS Safety Report 25800218 (Version 1)
Quarter: 2025Q3

REPORT INFORMATION
  Report Type: Spontaneous
  Country: US (occurrence: US)
  Receive Date: 20250915
  Receipt Date: 20250915
  Transmission Date: 20251021
  Serious: No
  Sender: ROCHE
  Company Number: US-ROCHE-10000383334

PATIENT
  Age: 67 Year
  Sex: Female

DRUGS (1)
  1. OCREVUS [Suspect]
     Active Substance: OCRELIZUMAB
     Indication: Relapsing multiple sclerosis
     Dosage: 600MG Q 6 MONTHS
     Route: 042
     Dates: start: 20250819

REACTIONS (5)
  - Syncope [Recovered/Resolved]
  - Visual impairment [Unknown]
  - Loss of consciousness [Unknown]
  - Chills [Unknown]
  - Hypotension [Unknown]

NARRATIVE: CASE EVENT DATE: 20250819
